FAERS Safety Report 21944629 (Version 1)
Quarter: 2023Q1

REPORT INFORMATION
  Report Type: Spontaneous
  Country: IT (occurrence: IT)
  Receive Date: 20230202
  Receipt Date: 20230202
  Transmission Date: 20230418
  Serious: Yes (Hospitalization)
  Sender: FDA-Public Use
  Company Number: None

PATIENT
  Age: 44 Year
  Sex: Male

DRUGS (3)
  1. IBUPROFEN [Suspect]
     Active Substance: IBUPROFEN
     Indication: Sciatica
     Dosage: UNK, NOT KNOWN
     Route: 048
     Dates: start: 20221022, end: 20221101
  2. PALEXIA [Suspect]
     Active Substance: TAPENTADOL HYDROCHLORIDE
     Indication: Sciatica
     Dosage: 50 MG: 1 TABLET X 4 TIMES PER DAY
     Route: 048
     Dates: start: 20221022, end: 20221101
  3. DEFLAZACORT [Concomitant]
     Active Substance: DEFLAZACORT
     Indication: Sciatica
     Dosage: 30 MG, TO DECREASE (1 X 5 DAY, THEN 1/2 X 5 DAY,
     Route: 048
     Dates: start: 20221021, end: 20221101

REACTIONS (1)
  - Drug reaction with eosinophilia and systemic symptoms [Recovered/Resolved]

NARRATIVE: CASE EVENT DATE: 20221101
